FAERS Safety Report 4353520-2 (Version None)
Quarter: 2004Q2

REPORT INFORMATION
  Report Type: 
  Country: None (occurrence: None)
  Receive Date: 20040505
  Receipt Date: 20040426
  Transmission Date: 20050107
  Serious: Yes (Other)
  Sender: FDA-Public Use
  Company Number: US-ROCHE-365759

PATIENT
  Age: 24 Year
  Sex: Female

DRUGS (3)
  1. ACCUTANE [Suspect]
     Route: 048
     Dates: start: 20040323, end: 20040329
  2. ACCUTANE [Suspect]
     Route: 048
     Dates: start: 20040319, end: 20040323
  3. ACCUTANE [Suspect]
     Route: 048
     Dates: start: 20040227, end: 20040315

REACTIONS (8)
  - DYSPNOEA [None]
  - FEAR [None]
  - ILL-DEFINED DISORDER [None]
  - NEGATIVE THOUGHTS [None]
  - NIGHTMARE [None]
  - PANIC ATTACK [None]
  - RASH [None]
  - VAGINAL HAEMORRHAGE [None]
